FAERS Safety Report 8207757-2 (Version None)
Quarter: 2012Q1

REPORT INFORMATION
  Report Type: 
  Country: None (occurrence: None)
  Receive Date: 20120313
  Receipt Date: 20120313
  Transmission Date: 20120608
  Serious: Yes (Hospitalization)
  Sender: FDA-Public Use
  Company Number: None

PATIENT
  Age: 49 Year
  Sex: Male
  Weight: 149.1 kg

DRUGS (1)
  1. LISINOPRIL [Suspect]
     Indication: HYPERTENSION
     Dosage: MG PO
     Route: 048
     Dates: start: 20110418, end: 20120121

REACTIONS (4)
  - ANGIOEDEMA [None]
  - HYPERTENSION [None]
  - DIABETES MELLITUS [None]
  - OROPHARYNGEAL PAIN [None]
